FAERS Safety Report 14336732 (Version 3)
Quarter: 2018Q1

REPORT INFORMATION
  Report Type: Spontaneous
  Country: US (occurrence: US)
  Receive Date: 20171229
  Receipt Date: 20180307
  Transmission Date: 20180509
  Serious: Yes (Hospitalization, Other)
  Sender: FDA-Public Use
  Company Number: US-GLAXOSMITHKLINE-US2017200801

PATIENT
  Sex: Female

DRUGS (6)
  1. ADVAIR DISKUS [Suspect]
     Active Substance: FLUTICASONE PROPIONATE\SALMETEROL XINAFOATE
     Indication: DYSPNOEA
     Dosage: 1 PUFF(S), BID
     Route: 055
  2. VENTOLIN HFA [Suspect]
     Active Substance: ALBUTEROL SULFATE
     Indication: DYSPNOEA
     Dosage: 2 PUFF(S), PRN
     Route: 055
     Dates: start: 1997
  3. INCRUSE ELLIPTA [Suspect]
     Active Substance: UMECLIDINIUM BROMIDE
     Indication: BRONCHITIS
     Dosage: UNK
     Route: 055
     Dates: start: 20171201
  4. TOPAMAX [Concomitant]
     Active Substance: TOPIRAMATE
  5. ADVAIR DISKUS [Suspect]
     Active Substance: FLUTICASONE PROPIONATE\SALMETEROL XINAFOATE
     Dosage: 1 PUFF(S), BID
     Route: 055
  6. PREDNISONE. [Concomitant]
     Active Substance: PREDNISONE

REACTIONS (15)
  - Bronchitis [Recovering/Resolving]
  - Chest discomfort [Recovered/Resolved]
  - Asthma [Recovering/Resolving]
  - Hypertension [Recovered/Resolved]
  - Drug ineffective [Unknown]
  - Drug dose omission [Unknown]
  - Heart rate increased [Recovered/Resolved]
  - Anxiety [Recovered/Resolved]
  - Pneumonia [Recovering/Resolving]
  - Headache [Unknown]
  - Product quality issue [Unknown]
  - Brain operation [Recovered/Resolved]
  - Cardiac flutter [Recovered/Resolved]
  - Aneurysm [Recovered/Resolved]
  - Nervous system disorder [Not Recovered/Not Resolved]
